FAERS Safety Report 15427588 (Version 2)
Quarter: 2018Q4

REPORT INFORMATION
  Report Type: Report from Study
  Country: US (occurrence: US)
  Receive Date: 20180925
  Receipt Date: 20181017
  Transmission Date: 20190204
  Serious: Yes (Death, Hospitalization, Other)
  Sender: FDA-Public Use
  Company Number: US-SEATTLE GENETICS-2018SGN02409

PATIENT
  Age: 60 Year
  Sex: Male
  Weight: 40.36 kg

DRUGS (4)
  1. VINBLASTINE [Suspect]
     Active Substance: VINBLASTINE
     Indication: HODGKIN^S DISEASE
     Dosage: UNK
     Dates: start: 20180320, end: 20180723
  2. DACARBAZINE. [Suspect]
     Active Substance: DACARBAZINE
     Indication: HODGKIN^S DISEASE
     Dosage: UNK
     Dates: start: 20180320, end: 20180723
  3. DOXORUBICIN [Suspect]
     Active Substance: DOXORUBICIN
     Indication: HODGKIN^S DISEASE
     Dosage: UNK
     Dates: start: 20180330, end: 20180723
  4. BRENTUXIMAB VEDOTIN [Suspect]
     Active Substance: BRENTUXIMAB VEDOTIN
     Indication: NODULAR LYMPHOCYTE PREDOMINANT HODGKIN LYMPHOMA
     Dosage: 64.2 MG, Q21D
     Route: 065
     Dates: start: 20180321, end: 20180723

REACTIONS (10)
  - Pleural effusion [Fatal]
  - Cardiac arrest [Fatal]
  - Cardiac failure [Fatal]
  - Acute respiratory failure [Fatal]
  - Urinary retention [Unknown]
  - Dysphagia [Unknown]
  - Hodgkin^s disease [Fatal]
  - Pneumonia [Fatal]
  - Chronic obstructive pulmonary disease [Fatal]
  - Pneumothorax [Unknown]

NARRATIVE: CASE EVENT DATE: 20180826
